FAERS Safety Report 5614673-9 (Version None)
Quarter: 2008Q1

REPORT INFORMATION
  Report Type: 
  Country: None (occurrence: None)
  Receive Date: 20080131
  Receipt Date: 20080123
  Transmission Date: 20080703
  Serious: Yes (Life-Threatening, Hospitalization)
  Sender: FDA-Public Use
  Company Number: CLOF-10567

PATIENT
  Age: 67 Year
  Sex: Male
  Weight: 86 kg

DRUGS (17)
  1. CLOFARABINE (CLOFARABINE) [Suspect]
     Indication: MYELOID LEUKAEMIA
     Dosage: 30 MG/M2, INTRAVENOUS
     Route: 042
     Dates: start: 20070608, end: 20070612
  2. ACETAMINOPHEN [Concomitant]
  3. LOVENOX [Concomitant]
  4. TOBRAMYCIN [Concomitant]
  5. VANCOMYCIN [Concomitant]
  6. DOUBUTAMINE [Concomitant]
  7. ALBUMIN (HUMAN) [Concomitant]
  8. NOREPINEPHRINE BITARTRATE [Concomitant]
  9. MEROPENEM (MEROPENEM) [Concomitant]
  10. OXYGEN (OXYGEN) [Concomitant]
  11. CASPOFUNGIN (CASPOFUNGIN) [Concomitant]
  12. NEUPOGEN [Concomitant]
  13. VASOTEC [Concomitant]
  14. DIURIL (CHLOROTHIAZIDE) [Concomitant]
  15. AMIADARONE [Concomitant]
  16. LEVAQUIN [Concomitant]
  17. VORICONAZOLE (VORICONAZOLE) [Concomitant]

REACTIONS (30)
  - ACUTE MYELOID LEUKAEMIA [None]
  - ADENOMA BENIGN [None]
  - AGGRESSION [None]
  - ASPIRATION [None]
  - ATELECTASIS [None]
  - BIOPSY BONE MARROW ABNORMAL [None]
  - CEREBRAL CALCIFICATION [None]
  - DEEP VEIN THROMBOSIS [None]
  - DEPRESSED LEVEL OF CONSCIOUSNESS [None]
  - GENERAL PHYSICAL HEALTH DETERIORATION [None]
  - HYPOTENSION [None]
  - HYPOVOLAEMIA [None]
  - LUNG CONSOLIDATION [None]
  - LYMPHADENOPATHY [None]
  - MALIGNANT NEOPLASM PROGRESSION [None]
  - MOUTH HAEMORRHAGE [None]
  - MOUTH ULCERATION [None]
  - OEDEMA PERIPHERAL [None]
  - PANCYTOPENIA [None]
  - PERIPHERAL ARTERY ANEURYSM [None]
  - PNEUMONIA [None]
  - PNEUMONIA BACTERIAL [None]
  - PSEUDOMONAS INFECTION [None]
  - PULMONARY EMBOLISM [None]
  - PULMONARY OEDEMA [None]
  - RENAL CYST [None]
  - RESPIRATORY FAILURE [None]
  - SEPTIC SHOCK [None]
  - TREATMENT FAILURE [None]
  - VARICOSE VEIN [None]
